FAERS Safety Report 11023908 (Version 1)
Quarter: 2015Q2

REPORT INFORMATION
  Report Type: Spontaneous
  Country: US (occurrence: US)
  Receive Date: 20150413
  Receipt Date: 20150413
  Transmission Date: 20150821
  Serious: No
  Sender: FDA-Public Use
  Company Number: US-PFIZER INC-2015121664

PATIENT

DRUGS (2)
  1. DEPO-MEDROL [Suspect]
     Active Substance: METHYLPREDNISOLONE ACETATE
     Indication: PAIN
     Dosage: 40 MG
  2. LIDOCAINE. [Concomitant]
     Active Substance: LIDOCAINE
     Dosage: UNK

REACTIONS (3)
  - Product quality issue [Unknown]
  - Injection site pain [Unknown]
  - Poor quality drug administered [Unknown]
